FAERS Safety Report 21785995 (Version 1)
Quarter: 2022Q4

REPORT INFORMATION
  Report Type: Spontaneous
  Country: US (occurrence: US)
  Receive Date: 20221228
  Receipt Date: 20221228
  Transmission Date: 20230112
  Serious: No
  Sender: FDA-Public Use
  Company Number: US-drreddys-SPO/USA/22/0158737

PATIENT
  Age: 78 Year
  Sex: Female

DRUGS (10)
  1. LENALIDOMIDE [Suspect]
     Active Substance: LENALIDOMIDE
     Indication: Plasma cell myeloma
     Route: 048
     Dates: start: 20221117
  2. VITAMIN B 12 TAB 500MCG [Concomitant]
     Indication: Product used for unknown indication
  3. ZOLEDRONIC ACID [Concomitant]
     Active Substance: ZOLEDRONIC ACID
     Indication: Product used for unknown indication
     Dosage: 5MG/100M
  4. VELCADE SOL 3.5MG [Concomitant]
     Indication: Product used for unknown indication
  5. ELIQUIS [Concomitant]
     Active Substance: APIXABAN
     Indication: Product used for unknown indication
  6. ACYCLOVIR TAB 800MG [Concomitant]
     Indication: Product used for unknown indication
  7. KLOR-CON 10 TBC 10MEQ [Concomitant]
     Indication: Product used for unknown indication
     Dosage: 10 TBC 10MEQ
  8. LEVOTHYROXIN TAB 112MCG [Concomitant]
     Indication: Product used for unknown indication
  9. VIMPAT TAB 150MG [Concomitant]
     Indication: Product used for unknown indication
  10. BISOPROLOL F TAB 10MG [Concomitant]
     Indication: Product used for unknown indication

REACTIONS (1)
  - Pruritus [Recovered/Resolved]
